FAERS Safety Report 5374060-8 (Version None)
Quarter: 2007Q2

REPORT INFORMATION
  Report Type: 
  Country: None (occurrence: None)
  Receive Date: 20070627
  Receipt Date: 20070620
  Transmission Date: 20071010
  Serious: Yes (Other)
  Sender: FDA-Public Use
  Company Number: 157843USA

PATIENT
  Sex: Female

DRUGS (1)
  1. SALBUTAMOL SULFATE [Suspect]
     Dosage: RESPIRATORY (INHALATION)
     Route: 055

REACTIONS (3)
  - ALCOHOLISM [None]
  - LOSS OF CONSCIOUSNESS [None]
  - PHARMACEUTICAL PRODUCT COMPLAINT [None]
